FAERS Safety Report 9403621 (Version 1)
Quarter: 2013Q3

REPORT INFORMATION
  Report Type: Spontaneous
  Country: US (occurrence: US)
  Receive Date: 20130717
  Receipt Date: 20130717
  Transmission Date: 20140515
  Serious: Yes (Hospitalization)
  Sender: FDA-Public Use
  Company Number: US-009507513-1307USA005303

PATIENT
  Age: 57 Year
  Sex: Female

DRUGS (3)
  1. ISENTRESS [Suspect]
     Indication: HIV INFECTION
     Dosage: 400 MG, BID
     Route: 048
  2. RITONAVIR [Concomitant]
  3. KALETRA [Concomitant]

REACTIONS (3)
  - Adverse event [Unknown]
  - Malaise [Not Recovered/Not Resolved]
  - Anxiety [Unknown]
